FAERS Safety Report 6663775-7 (Version None)
Quarter: 2010Q2

REPORT INFORMATION
  Report Type: 
  Country: None (occurrence: None)
  Receive Date: 20100401
  Receipt Date: 20100323
  Transmission Date: 20101027
  Serious: Yes (Hospitalization)
  Sender: FDA-Public Use
  Company Number: IT-ABBOTT-10P-083-0633974-00

PATIENT
  Sex: Female

DRUGS (1)
  1. KLACID FOR ORAL SUSPENSION [Suspect]
     Indication: INFLUENZA
     Dosage: 1 UNIT
     Route: 048
     Dates: start: 20100204, end: 20100204

REACTIONS (3)
  - FACE OEDEMA [None]
  - FLUSHING [None]
  - URTICARIA [None]
